FAERS Safety Report 9973342 (Version 5)
Quarter: 2014Q2

REPORT INFORMATION
  Report Type: Report from Study
  Country: GB (occurrence: GB)
  Receive Date: 20140306
  Receipt Date: 20140506
  Transmission Date: 20141212
  Serious: Yes (Death, Hospitalization)
  Sender: FDA-Public Use
  Company Number: GB-BRISTOL-MYERS SQUIBB COMPANY-20335592

PATIENT
  Age: 67 Year
  Sex: Male

DRUGS (9)
  1. ABATACEPT SUBQ INJECTION 125MG/ML [Suspect]
     Indication: RHEUMATOID ARTHRITIS
     Dosage: INTERRUPTED FOR 2 WEEKS
     Route: 058
     Dates: start: 20130924
  2. METHOTREXATE [Concomitant]
  3. PREDNISOLONE [Concomitant]
  4. CO-CODAMOL [Concomitant]
  5. OMEPRAZOLE [Concomitant]
  6. ESCITALOPRAM [Concomitant]
  7. FOLIC ACID [Concomitant]
  8. IBANDRONIC ACID [Concomitant]
  9. CALCICHEW [Concomitant]

REACTIONS (11)
  - Pulmonary fibrosis [Fatal]
  - Bronchopneumonia [Fatal]
  - Chronic obstructive pulmonary disease [Fatal]
  - Myocardial ischaemia [Fatal]
  - Malaise [Unknown]
  - Decreased appetite [Unknown]
  - Anxiety [Unknown]
  - Dyspnoea [Unknown]
  - Hyperhidrosis [Unknown]
  - Diarrhoea [Unknown]
  - Drug dose omission [Unknown]
